FAERS Safety Report 6321021-8 (Version None)
Quarter: 2009Q3

REPORT INFORMATION
  Report Type: 
  Country: None (occurrence: None)
  Receive Date: 20090822
  Receipt Date: 20081223
  Transmission Date: 20100115
  Serious: No
  Sender: FDA-Public Use
  Company Number: US-ABBOTT-08P-163-0494862-00

PATIENT
  Sex: Female
  Weight: 70.824 kg

DRUGS (4)
  1. NIASPAN [Suspect]
     Indication: BLOOD CHOLESTEROL INCREASED
     Dates: start: 20080101, end: 20081001
  2. METFORMIN HCL [Concomitant]
     Indication: DIABETES MELLITUS
  3. GLIMEPIRIDE [Concomitant]
     Indication: DIABETES MELLITUS
  4. LOVIATATIN [Concomitant]
     Indication: BLOOD CHOLESTEROL INCREASED

REACTIONS (2)
  - FLUSHING [None]
  - SKIN BURNING SENSATION [None]
